FAERS Safety Report 13044918 (Version 1)
Quarter: 2016Q4

REPORT INFORMATION
  Report Type: Spontaneous
  Country: IN (occurrence: IN)
  Receive Date: 20161220
  Receipt Date: 20161220
  Transmission Date: 20170207
  Serious: Yes (Hospitalization)
  Sender: FDA-Public Use
  Company Number: IN-SUN PHARMACEUTICAL INDUSTRIES LTD-2016R1-129619

PATIENT
  Sex: Male

DRUGS (2)
  1. SPORIDEX [Suspect]
     Active Substance: CEPHALEXIN
     Indication: INFECTION PROPHYLAXIS
     Route: 065
  2. SPORIDEX AF [Suspect]
     Active Substance: CEPHALEXIN
     Indication: INFECTION PROPHYLAXIS
     Route: 065

REACTIONS (3)
  - Product availability issue [Unknown]
  - Pyrexia [Unknown]
  - Diarrhoea [Unknown]
